FAERS Safety Report 21018029 (Version 2)
Quarter: 2022Q2

REPORT INFORMATION
  Report Type: Spontaneous
  Country: JP (occurrence: JP)
  Receive Date: 20220628
  Receipt Date: 20220630
  Transmission Date: 20220721
  Serious: Yes (Hospitalization)
  Sender: FDA-Public Use
  Company Number: JP-PFIZER INC-PV202200010174

PATIENT
  Age: 30 Year
  Sex: Female
  Weight: 77 kg

DRUGS (34)
  1. BILASTINE [Suspect]
     Active Substance: BILASTINE
     Indication: Rhinitis allergic
     Dosage: 20 MG, 1X/DAY
     Route: 048
     Dates: start: 20180727, end: 20181217
  2. LYRICA [Suspect]
     Active Substance: PREGABALIN
     Dosage: UNK
     Route: 048
  3. MONTELUKAST SODIUM [Suspect]
     Active Substance: MONTELUKAST SODIUM
     Indication: Asthma
     Dosage: 10 MG, 1X/DAY
     Route: 048
  4. NEXIUM [Suspect]
     Active Substance: ESOMEPRAZOLE MAGNESIUM
     Indication: Gastrooesophageal reflux disease
     Dosage: 20 MG, 1X/DAY
     Route: 048
  5. SUPLATAST TOSILATE [Suspect]
     Active Substance: SUPLATAST TOSILATE
     Indication: Asthma
     Dosage: 300 MG, 1X/DAY
     Route: 048
  6. PITAVASTATIN CALCIUM [Suspect]
     Active Substance: PITAVASTATIN CALCIUM
     Dosage: UNK
     Route: 048
  7. BETAMETHASONE [Suspect]
     Active Substance: BETAMETHASONE
     Indication: Asthma
     Dosage: 1 MG, 1X/DAY
     Route: 048
     Dates: end: 20180620
  8. BETAMETHASONE [Suspect]
     Active Substance: BETAMETHASONE
     Dosage: 4 MG, 1X/DAY
     Route: 048
     Dates: start: 20180621, end: 20180624
  9. BETAMETHASONE [Suspect]
     Active Substance: BETAMETHASONE
     Dosage: 2 MG, 1X/DAY
     Route: 048
     Dates: start: 20180701
  10. BETAMETHASONE [Suspect]
     Active Substance: BETAMETHASONE
     Dosage: 2 MG, 1X/DAY
     Route: 048
     Dates: end: 20180716
  11. BETAMETHASONE [Suspect]
     Active Substance: BETAMETHASONE
     Dosage: 3 MG, 1X/DAY
     Route: 048
     Dates: start: 20180717, end: 20180823
  12. BETAMETHASONE [Suspect]
     Active Substance: BETAMETHASONE
     Dosage: 4 MG, 1X/DAY
     Route: 048
     Dates: start: 20180828, end: 20180901
  13. BETAMETHASONE [Suspect]
     Active Substance: BETAMETHASONE
     Dosage: 3 MG, 1X/DAY
     Route: 048
     Dates: start: 20180902, end: 20180910
  14. BETAMETHASONE [Suspect]
     Active Substance: BETAMETHASONE
     Dosage: 2 MG, 1X/DAY
     Route: 048
     Dates: start: 20180911, end: 20181121
  15. BETAMETHASONE [Suspect]
     Active Substance: BETAMETHASONE
     Dosage: 1 MG, 1X/DAY
     Route: 048
     Dates: start: 20181122, end: 20190314
  16. FASENRA [Suspect]
     Active Substance: BENRALIZUMAB
     Indication: Asthma
     Dosage: 30 UNK, 1X/DAY
     Route: 058
     Dates: start: 20180705, end: 20180705
  17. FASENRA [Suspect]
     Active Substance: BENRALIZUMAB
     Dosage: 30 MG, 1X/DAY
     Route: 058
     Dates: start: 20180803, end: 20180803
  18. FASENRA [Suspect]
     Active Substance: BENRALIZUMAB
     Dosage: 30 MG, 1X/DAY
     Route: 058
     Dates: start: 20180831, end: 20180831
  19. FASENRA [Suspect]
     Active Substance: BENRALIZUMAB
     Dosage: 30 MG, 1X/DAY
     Route: 058
     Dates: start: 20181106, end: 20181106
  20. FASENRA [Suspect]
     Active Substance: BENRALIZUMAB
     Dosage: 30 MG, 1X/DAY
     Route: 058
     Dates: start: 20190111, end: 20190111
  21. FASENRA [Suspect]
     Active Substance: BENRALIZUMAB
     Dosage: 30 MG, 1X/DAY
     Route: 058
     Dates: start: 20190301, end: 20190301
  22. ERYTHROMYCIN [Suspect]
     Active Substance: ERYTHROMYCIN
     Indication: Asthma
     Dosage: 400 MG, 1X/DAY
     Route: 048
     Dates: start: 20180827, end: 20181207
  23. BEZAFIBRATE [Suspect]
     Active Substance: BEZAFIBRATE
     Dosage: UNK
     Route: 048
  24. SULFAMETHOXAZOLE\TRIMETHOPRIM [Suspect]
     Active Substance: SULFAMETHOXAZOLE\TRIMETHOPRIM
     Indication: Pneumocystis jirovecii pneumonia
     Dosage: 1 DF, 1X/DAY
     Route: 048
     Dates: end: 20181207
  25. BONALON [Suspect]
     Active Substance: ALENDRONATE SODIUM
     Indication: Osteoporosis prophylaxis
     Dosage: 5 MG, 1X/DAY
     Route: 048
  26. FUROSEMIDE [Suspect]
     Active Substance: FUROSEMIDE
     Dosage: UNK
  27. ORYCTOLAGUS CUNICULUS SKIN [Suspect]
     Active Substance: ORYCTOLAGUS CUNICULUS SKIN
     Dosage: UNK
  28. UNIPHYL [Suspect]
     Active Substance: THEOPHYLLINE ANHYDROUS
     Indication: Asthma
     Dosage: 600 MG, 1X/DAY
     Route: 048
  29. BETAMETHASONE SODIUM PHOSPHATE [Concomitant]
     Active Substance: BETAMETHASONE SODIUM PHOSPHATE
     Dosage: UNK
     Dates: start: 20180625, end: 20180827
  30. FLUTICASONE PROPIONATE\FORMOTEROL FUMARATE [Concomitant]
     Active Substance: FLUTICASONE PROPIONATE\FORMOTEROL FUMARATE
     Dosage: UNK
     Dates: end: 20180904
  31. SYMBICORT [Concomitant]
     Active Substance: BUDESONIDE\FORMOTEROL FUMARATE DIHYDRATE
     Dosage: UNK
     Dates: start: 20180905
  32. INTAL [Concomitant]
     Active Substance: CROMOLYN SODIUM
     Dosage: UNK
  33. PROCATEROL HYDROCHLORIDE [Concomitant]
     Active Substance: PROCATEROL HYDROCHLORIDE
     Dosage: UNK
  34. SPIRIVA [Concomitant]
     Active Substance: TIOTROPIUM BROMIDE MONOHYDRATE
     Dosage: UNK

REACTIONS (4)
  - Asthma [Recovering/Resolving]
  - Oedema [Not Recovered/Not Resolved]
  - Herpes zoster [Recovered/Resolved with Sequelae]
  - Hepatic function abnormal [Recovering/Resolving]

NARRATIVE: CASE EVENT DATE: 20180822
